FAERS Safety Report 20821694 (Version 2)
Quarter: 2022Q2

REPORT INFORMATION
  Report Type: Report from Study
  Country: DE (occurrence: DE)
  Receive Date: 20220512
  Receipt Date: 20220519
  Transmission Date: 20220721
  Serious: Yes (Death, Hospitalization)
  Sender: FDA-Public Use
  Company Number: DE-PFIZER INC-202200687750

PATIENT
  Age: 74 Year
  Sex: Male
  Weight: 98 kg

DRUGS (23)
  1. VYNDAQEL [Suspect]
     Active Substance: TAFAMIDIS MEGLUMINE
     Indication: Amyloidosis
     Dosage: 20 MG, 1X/DAY
     Route: 048
     Dates: start: 20210531
  2. CRESEMBA [Concomitant]
     Active Substance: ISAVUCONAZONIUM SULFATE
     Indication: Antifungal prophylaxis
     Dosage: UNK
     Route: 048
     Dates: start: 202204
  3. TACROLIMUS [Concomitant]
     Active Substance: TACROLIMUS
     Indication: Immunosuppressant drug therapy
     Dosage: UNK
     Route: 048
     Dates: start: 2007
  4. PREDNISOLONE [Concomitant]
     Active Substance: PREDNISOLONE
     Indication: Gout
     Dosage: UNK
     Route: 048
     Dates: start: 202205
  5. ASPIRIN [Concomitant]
     Active Substance: ASPIRIN
     Indication: Cerebrovascular accident prophylaxis
     Dosage: UNK
     Route: 048
     Dates: start: 2013
  6. ENOXAPARIN SODIUM [Concomitant]
     Active Substance: ENOXAPARIN SODIUM
     Indication: Cerebrovascular accident prophylaxis
     Dosage: UNK
     Route: 058
     Dates: start: 202205
  7. IVABRADINE [Concomitant]
     Active Substance: IVABRADINE
     Indication: Cardiac failure
     Dosage: UNK
     Route: 048
     Dates: start: 202205
  8. XIPAMIDE [Concomitant]
     Active Substance: XIPAMIDE
     Indication: Hypertension
     Dosage: UNK
     Route: 048
     Dates: start: 202205
  9. TORSEMIDE [Concomitant]
     Active Substance: TORSEMIDE
     Indication: Prophylaxis
     Dosage: UNK
     Route: 048
     Dates: start: 202105
  10. ROSUVASTATIN [Concomitant]
     Active Substance: ROSUVASTATIN
     Indication: Hyperlipidaemia
     Dosage: UNK
     Route: 048
     Dates: start: 202205
  11. TAMSULOSIN [Concomitant]
     Active Substance: TAMSULOSIN
     Indication: Benign prostatic hyperplasia
     Dosage: UNK
     Route: 048
     Dates: start: 202102
  12. FINASTERIDE [Concomitant]
     Active Substance: FINASTERIDE
     Indication: Benign prostatic hyperplasia
     Dosage: UNK
     Route: 048
     Dates: start: 202102
  13. PANTOPRAZOLE SODIUM [Concomitant]
     Active Substance: PANTOPRAZOLE SODIUM
     Indication: Gastritis prophylaxis
     Dosage: UNK
     Route: 048
     Dates: start: 2022
  14. MAGNESIUM [Concomitant]
     Active Substance: MAGNESIUM
     Indication: Prophylaxis
     Dosage: UNK
     Route: 048
     Dates: start: 202205
  15. ATROVENT [Concomitant]
     Active Substance: IPRATROPIUM BROMIDE
     Indication: Chronic obstructive pulmonary disease
     Dosage: UNK
     Route: 055
     Dates: start: 202205
  16. ALBUTEROL [Concomitant]
     Active Substance: ALBUTEROL
     Indication: Chronic obstructive pulmonary disease
     Dosage: UNK
     Route: 055
     Dates: start: 202205
  17. MUCOCLEAR [SODIUM CHLORIDE] [Concomitant]
     Indication: Secretion discharge
     Dosage: UNK
     Route: 055
     Dates: start: 202205
  18. METAMIZOL [Concomitant]
     Active Substance: METAMIZOLE SODIUM
     Indication: Pain
     Dosage: UNK
     Route: 048
     Dates: start: 202205
  19. NALOXONE HYDROCHLORIDE\TILIDINE HYDROCHLORIDE [Concomitant]
     Active Substance: NALOXONE HYDROCHLORIDE\TILIDINE HYDROCHLORIDE
     Indication: Pain
     Dosage: UNK
     Route: 048
     Dates: start: 202205
  20. NALOXONE HYDROCHLORIDE [Concomitant]
     Active Substance: NALOXONE HYDROCHLORIDE
     Indication: Pain
     Dosage: UNK
     Route: 048
     Dates: start: 202205
  21. ACETAMINOPHEN [Concomitant]
     Active Substance: ACETAMINOPHEN
     Indication: Pain
     Dosage: UNK
     Route: 048
     Dates: start: 202205
  22. DULCOLAX (BISACODYL) [Concomitant]
     Active Substance: BISACODYL
     Indication: Prophylaxis
     Dosage: UNK
     Route: 048
     Dates: start: 2022
  23. MOVICOL [Concomitant]
     Active Substance: POLYETHYLENE GLYCOL 3350\POTASSIUM CHLORIDE\SODIUM BICARBONATE\SODIUM CHLORIDE
     Indication: Prophylaxis
     Dosage: UNK
     Route: 048
     Dates: start: 2021

REACTIONS (1)
  - Death [Fatal]

NARRATIVE: CASE EVENT DATE: 20220507
